FAERS Safety Report 9440213 (Version 1)
Quarter: 2013Q3

REPORT INFORMATION
  Report Type: Spontaneous
  Country: JP (occurrence: JP)
  Receive Date: 20130805
  Receipt Date: 20130805
  Transmission Date: 20140515
  Serious: Yes (Other)
  Sender: FDA-Public Use
  Company Number: PHHY2013JP082980

PATIENT
  Sex: Female

DRUGS (3)
  1. DIOVAN [Suspect]
     Indication: HYPERTENSION
     Dosage: 40 MG, DAILY
     Route: 048
     Dates: start: 2007
  2. DIOVAN [Suspect]
     Dosage: 80 MG, DAILY
     Route: 048
  3. AMLODIPINE OD [Concomitant]
     Dosage: 5 MG, DAILY
     Route: 048
     Dates: start: 2012

REACTIONS (11)
  - Cataract [Unknown]
  - Ocular hyperaemia [Unknown]
  - Blood pressure decreased [Unknown]
  - Anal pruritus [Not Recovered/Not Resolved]
  - Urticaria [Recovered/Resolved]
  - Skin depigmentation [Unknown]
  - Miliaria [Unknown]
  - Pain in extremity [Unknown]
  - Pain [Unknown]
  - Arthralgia [Unknown]
  - Pruritus [Unknown]
